FAERS Safety Report 9820267 (Version 1)
Quarter: 2013Q4

REPORT INFORMATION
  Report Type: Spontaneous
  Country: US (occurrence: None)
  Receive Date: 20131224
  Receipt Date: 20131224
  Transmission Date: 20140711
  Serious: No
  Sender: FDA-Public Use
  Company Number: PHEH2013US022502

PATIENT
  Age: 56 Year
  Sex: Female

DRUGS (2)
  1. GILENYA (FINGOLIMOD) CAPSULE, 0.5MG [Suspect]
     Route: 048
     Dates: start: 20131011
  2. CELEBREX (CELECOXIB) [Concomitant]

REACTIONS (3)
  - Fatigue [None]
  - Headache [None]
  - Heart rate decreased [None]
